FAERS Safety Report 18355766 (Version 1)
Quarter: 2020Q4

REPORT INFORMATION
  Report Type: Spontaneous
  Country: US (occurrence: US)
  Receive Date: 20201007
  Receipt Date: 20201007
  Transmission Date: 20210114
  Serious: No
  Sender: FDA-Public Use
  Company Number: None

PATIENT
  Age: 73 Year
  Sex: Female

DRUGS (1)
  1. VERZENIO [Suspect]
     Active Substance: ABEMACICLIB
     Indication: BREAST CANCER FEMALE
     Route: 048

REACTIONS (3)
  - Dyspnoea exertional [None]
  - Full blood count decreased [None]
  - Pulmonary oedema [None]

NARRATIVE: CASE EVENT DATE: 20201006
